FAERS Safety Report 21921096 (Version 3)
Quarter: 2023Q1

REPORT INFORMATION
  Report Type: Report from Study
  Country: US (occurrence: US)
  Receive Date: 20230127
  Receipt Date: 20230228
  Transmission Date: 20230417
  Serious: No
  Sender: FDA-Public Use
  Company Number: US-002147023-NVSC2022US303354

PATIENT
  Sex: Female

DRUGS (1)
  1. ORPHENADRINE CITRATE [Suspect]
     Active Substance: ORPHENADRINE CITRATE
     Indication: Muscle spasms
     Dosage: 100 MG
     Route: 048

REACTIONS (2)
  - Tremor [Unknown]
  - Prescription drug used without a prescription [Unknown]
